FAERS Safety Report 16474906 (Version 4)
Quarter: 2020Q1

REPORT INFORMATION
  Report Type: Report from Study
  Country: CO (occurrence: CO)
  Receive Date: 20190625
  Receipt Date: 20200304
  Transmission Date: 20200409
  Serious: Yes (Hospitalization, Other)
  Sender: FDA-Public Use
  Company Number: CO-ASTELLAS-2019US020503

PATIENT
  Age: 43 Year
  Sex: Male

DRUGS (13)
  1. ETHAMBUTOL [Concomitant]
     Active Substance: ETHAMBUTOL HYDROCHLORIDE
     Indication: LYMPH NODE TUBERCULOSIS
     Dosage: UNK UNK, ONCE DAILY
     Route: 048
  2. TACROLIMUS. [Suspect]
     Active Substance: TACROLIMUS
     Route: 048
     Dates: start: 202002
  3. ISONIAZID. [Concomitant]
     Active Substance: ISONIAZID
     Indication: LYMPH NODE TUBERCULOSIS
     Dosage: UNK UNK, ONCE DAILY
     Route: 048
  4. PYRAZINAMIDE. [Concomitant]
     Active Substance: PYRAZINAMIDE
     Indication: LYMPH NODE TUBERCULOSIS
     Dosage: UNK UNK, ONCE DAILY
     Route: 048
  5. CARVEDILOL. [Concomitant]
     Active Substance: CARVEDILOL
     Indication: BLOOD PRESSURE MEASUREMENT
     Route: 048
  6. TACROLIMUS. [Suspect]
     Active Substance: TACROLIMUS
     Indication: RENAL TRANSPLANT
     Dosage: 7 MG, ONCE DAILY (2 CAPSULES OF 1MG AND 1 CAPSULE OF 5MG)
     Route: 048
     Dates: start: 20190202, end: 201906
  7. MYCOPHENOLATE SANDOZ [Concomitant]
     Active Substance: MYCOPHENOLATE MOFETIL
     Indication: TRANSPLANT
     Route: 048
     Dates: start: 20190202
  8. TACROLIMUS. [Suspect]
     Active Substance: TACROLIMUS
     Route: 048
  9. TACROLIMUS. [Suspect]
     Active Substance: TACROLIMUS
     Route: 048
     Dates: start: 20190606, end: 202002
  10. RIFAMPIN. [Concomitant]
     Active Substance: RIFAMPIN
     Indication: LYMPH NODE TUBERCULOSIS
     Dosage: UNK UNK, ONCE DAILY
     Route: 048
  11. AMLODIPINE [Concomitant]
     Active Substance: AMLODIPINE BESYLATE
     Indication: BLOOD PRESSURE MEASUREMENT
     Route: 048
  12. PRAZOSIN. [Concomitant]
     Active Substance: PRAZOSIN
     Indication: BLOOD PRESSURE MEASUREMENT
     Route: 048
  13. IRBESARTAN. [Concomitant]
     Active Substance: IRBESARTAN
     Indication: BLOOD PRESSURE MEASUREMENT
     Route: 048

REACTIONS (6)
  - Blood creatinine abnormal [Recovering/Resolving]
  - Tuberculosis [Recovering/Resolving]
  - Dysarthria [Recovered/Resolved]
  - Haematoma [Recovering/Resolving]
  - Tremor [Recovering/Resolving]
  - Groin abscess [Recovering/Resolving]

NARRATIVE: CASE EVENT DATE: 20190508
